FAERS Safety Report 9804222 (Version 3)
Quarter: 2015Q3

REPORT INFORMATION
  Report Type: Spontaneous
  Country: US (occurrence: None)
  Receive Date: 20140106
  Receipt Date: 20150713
  Transmission Date: 20151125
  Serious: No
  Sender: FDA-Public Use
  Company Number: 2013-00168

PATIENT
  Sex: Male

DRUGS (2)
  1. ZICAM ALLERGY RELIEF [Suspect]
     Active Substance: GALPHIMIA GLAUCA FLOWERING TOP\HISTAMINE DIHYDROCHLORIDE\LUFFA OPERCULATA FRUIT\SULFUR
     Dosage: 1 SPRAY EACH NOSTRIL (A FEW MONTHS AGO)
     Route: 045
  2. ZICAM ALLERGY RELIEF [Suspect]
     Active Substance: GALPHIMIA GLAUCA FLOWERING TOP\HISTAMINE DIHYDROCHLORIDE\LUFFA OPERCULATA FRUIT\SULFUR
     Indication: NASOPHARYNGITIS
     Dosage: 1 SPRAY EACH NOSTRIL (A FEW MONTHS AGO)
     Route: 045

REACTIONS (2)
  - Hyposmia [None]
  - Hypogeusia [None]
